FAERS Safety Report 19775694 (Version 3)
Quarter: 2022Q2

REPORT INFORMATION
  Report Type: Other
  Country: US (occurrence: None)
  Receive Date: 20210902
  Receipt Date: 20220607
  Transmission Date: 20220721
  Serious: No
  Sender: FDA-Public Use
  Company Number: US-ROCHE-2898730

PATIENT
  Age: 65 Year
  Sex: Male
  Weight: 65.830 kg

DRUGS (7)
  1. OCREVUS [Suspect]
     Active Substance: OCRELIZUMAB
     Indication: Primary progressive multiple sclerosis
     Route: 042
     Dates: start: 20200220
  2. AMPYRA [Suspect]
     Active Substance: DALFAMPRIDINE
     Indication: Product used for unknown indication
     Route: 048
     Dates: start: 202102, end: 202104
  3. AMPYRA [Suspect]
     Active Substance: DALFAMPRIDINE
     Dosage: 1 PILL IN THE MORNING AND 1 PILL AT NIGHT
     Route: 048
     Dates: start: 202104, end: 202104
  4. BACLOFEN [Concomitant]
     Active Substance: BACLOFEN
     Indication: Muscle spasms
     Route: 048
     Dates: start: 201910
  5. TIZANIDINE [Concomitant]
     Active Substance: TIZANIDINE
     Indication: Muscle spasms
     Dosage: TAKEN AT NIGHT
     Route: 048
  6. ALFUZOSIN HYDROCHLORIDE [Concomitant]
     Active Substance: ALFUZOSIN HYDROCHLORIDE
     Route: 048
  7. FLUCONAZOLE [Concomitant]
     Active Substance: FLUCONAZOLE

REACTIONS (10)
  - Candida infection [Recovered/Resolved]
  - Balance disorder [Recovering/Resolving]
  - Fatigue [Recovering/Resolving]
  - Abdominal discomfort [Recovered/Resolved]
  - Temperature intolerance [Unknown]
  - Oral pain [Unknown]
  - Alopecia [Unknown]
  - Anxiety [Unknown]
  - Walking aid user [Unknown]
  - Infection [Unknown]

NARRATIVE: CASE EVENT DATE: 20210401
